FAERS Safety Report 9798992 (Version 3)
Quarter: 2015Q3

REPORT INFORMATION
  Report Type: Spontaneous
  Country: US (occurrence: US)
  Receive Date: 20140106
  Receipt Date: 20150806
  Transmission Date: 20151125
  Serious: No
  Sender: FDA-Public Use
  Company Number: US-GILEAD-2010-0032296

PATIENT
  Age: 51 Year
  Sex: Male
  Weight: 86.18 kg

DRUGS (12)
  1. LETAIRIS [Suspect]
     Active Substance: AMBRISENTAN
     Indication: PULMONARY ARTERIAL HYPERTENSION
     Route: 048
     Dates: start: 20100914
  2. TYVASO [Concomitant]
     Active Substance: TREPROSTINIL
  3. METOLAZONE. [Concomitant]
     Active Substance: METOLAZONE
  4. HUMALOG [Concomitant]
     Active Substance: INSULIN LISPRO
  5. PRILOSEC [Concomitant]
     Active Substance: OMEPRAZOLE MAGNESIUM
  6. LASIX [Concomitant]
     Active Substance: FUROSEMIDE
  7. VIAGRA [Concomitant]
     Active Substance: SILDENAFIL CITRATE
  8. METOPROLOL [Concomitant]
     Active Substance: METOPROLOL
  9. SALMON OIL [Concomitant]
     Active Substance: FISH OIL
  10. SIMVASTATIN. [Concomitant]
     Active Substance: SIMVASTATIN
  11. ASPIRIN. [Concomitant]
     Active Substance: ASPIRIN
  12. LANTUS [Concomitant]
     Active Substance: INSULIN GLARGINE

REACTIONS (1)
  - Oedema [Unknown]
